FAERS Safety Report 5789473-X (Version None)
Quarter: 2008Q2

REPORT INFORMATION
  Report Type: 
  Country: None (occurrence: None)
  Receive Date: 20080623
  Receipt Date: 20080609
  Transmission Date: 20081010
  Serious: Yes (Death, Hospitalization)
  Sender: FDA-Public Use
  Company Number: 2008AL006621

PATIENT
  Age: 80 Year
  Sex: Male

DRUGS (8)
  1. DIGOXIN [Suspect]
  2. ASPIRIN [Concomitant]
  3. COUMADIN [Concomitant]
  4. DIGITEK [Concomitant]
  5. ATENOLOL [Concomitant]
  6. LISINOPRIL [Concomitant]
  7. TRICOR [Concomitant]
  8. FLOMAX [Concomitant]

REACTIONS (3)
  - CEREBROVASCULAR ACCIDENT [None]
  - MALAISE [None]
  - UNRESPONSIVE TO STIMULI [None]
